FAERS Safety Report 4628423-6 (Version None)
Quarter: 2005Q2

REPORT INFORMATION
  Report Type: 
  Country: None (occurrence: None)
  Receive Date: 20050404
  Receipt Date: 20050323
  Transmission Date: 20051028
  Serious: Yes (Other)
  Sender: FDA-Public Use
  Company Number: EM2005-0155

PATIENT
  Age: 57 Year
  Sex: Male

DRUGS (6)
  1. PROLEUKIN [Suspect]
     Indication: MALIGNANT MELANOMA
     Dosage: 0.6 MIU/KG
  2. THALIDOMIDE (THALIDOMIDE) [Concomitant]
  3. VENLAFAXINE HCL [Concomitant]
  4. DEXAMETHASONE [Concomitant]
  5. LEVETIRACETAM [Concomitant]
  6. PHENYTOIN [Concomitant]

REACTIONS (11)
  - ASTHENIA [None]
  - BLOOD BILIRUBIN INCREASED [None]
  - BLOOD LACTATE DEHYDROGENASE INCREASED [None]
  - CONVULSION [None]
  - DIFFICULTY IN WALKING [None]
  - HAEMOLYTIC ANAEMIA [None]
  - HAEMOLYTIC URAEMIC SYNDROME [None]
  - HYPOTENSION [None]
  - LETHARGY [None]
  - RENAL FAILURE [None]
  - THROMBOTIC THROMBOCYTOPENIC PURPURA [None]
